FAERS Safety Report 6276203-0 (Version None)
Quarter: 2009Q3

REPORT INFORMATION
  Report Type: 
  Country: None (occurrence: None)
  Receive Date: 20090722
  Receipt Date: 20090710
  Transmission Date: 20100115
  Serious: Yes (Other)
  Sender: FDA-Public Use
  Company Number: JP-TYCO HEALTHCARE/MALLINCKRODT-T200901245

PATIENT
  Age: 71 Year
  Sex: Male

DRUGS (7)
  1. OPTIRAY 350 [Suspect]
     Indication: COMPUTERISED TOMOGRAM ABDOMEN
     Dosage: 100 ML, SINGLE
     Route: 042
     Dates: start: 20090618, end: 20090618
  2. HYDROCORTISONE SODIUM SUCCINATE [Concomitant]
     Indication: PREMEDICATION
     Dosage: 200 MG, SINGLE
     Route: 042
     Dates: start: 20090618, end: 20090618
  3. SPIRONOLACTONE [Concomitant]
  4. OMEPRAZOLE [Concomitant]
  5. GLICLAZIDE [Concomitant]
  6. URSODIOL [Concomitant]
  7. FUROSEMIDE [Concomitant]

REACTIONS (1)
  - ANAPHYLACTOID REACTION [None]
